FAERS Safety Report 23971752 (Version 1)
Quarter: 2024Q2

REPORT INFORMATION
  Report Type: Spontaneous
  Country: US (occurrence: US)
  Receive Date: 20240613
  Receipt Date: 20240613
  Transmission Date: 20240716
  Serious: Yes (Life-Threatening, Hospitalization, Other)
  Sender: FDA-Public Use
  Company Number: US-GRANULES-US-2024GRALIT00214

PATIENT
  Age: 57 Year
  Sex: Female

DRUGS (4)
  1. BUPROPION HYDROCHLORIDE [Suspect]
     Active Substance: BUPROPION HYDROCHLORIDE
     Indication: Product used for unknown indication
     Route: 065
  2. CHLORDIAZEPOXIDE [Suspect]
     Active Substance: CHLORDIAZEPOXIDE
     Indication: Product used for unknown indication
     Route: 065
  3. PROPRANOLOL [Suspect]
     Active Substance: PROPRANOLOL HYDROCHLORIDE
     Indication: Product used for unknown indication
     Route: 065
  4. ALCOHOL [Suspect]
     Active Substance: ALCOHOL
     Indication: Product used for unknown indication
     Route: 065

REACTIONS (10)
  - Generalised tonic-clonic seizure [Unknown]
  - Brain stem syndrome [Recovered/Resolved]
  - Cardiogenic shock [Recovered/Resolved]
  - Renal tubular necrosis [Unknown]
  - Acute kidney injury [Unknown]
  - Myocardial ischaemia [Unknown]
  - Ejection fraction decreased [Unknown]
  - Right ventricular dysfunction [Unknown]
  - Coma scale abnormal [Unknown]
  - Intentional overdose [Unknown]
